FAERS Safety Report 7556650-7 (Version None)
Quarter: 2011Q2

REPORT INFORMATION
  Report Type: 
  Country: None (occurrence: None)
  Receive Date: 20110620
  Receipt Date: 20110610
  Transmission Date: 20111010
  Serious: Yes (Hospitalization)
  Sender: FDA-Public Use
  Company Number: FR-SANOFI-AVENTIS-2011SA036745

PATIENT
  Age: 88 Year
  Sex: Male

DRUGS (10)
  1. GENTAMICIN [Concomitant]
     Route: 065
     Dates: end: 20100301
  2. ALFUZOSIN HCL [Suspect]
     Route: 048
     Dates: end: 20100409
  3. AMIODARONE HCL [Concomitant]
     Route: 048
  4. ASPIRIN [Concomitant]
     Route: 048
  5. ROCEPHIN [Concomitant]
     Route: 065
     Dates: end: 20100301
  6. OFLOXACIN [Suspect]
     Indication: STAPHYLOCOCCAL INFECTION
     Route: 048
     Dates: start: 20100323, end: 20100409
  7. EXELON [Concomitant]
     Route: 003
  8. RIFADIN [Concomitant]
     Route: 048
     Dates: start: 20100323, end: 20100423
  9. MODOPAR [Concomitant]
     Route: 048
  10. ORBENIN CAP [Concomitant]
     Route: 042
     Dates: start: 20100301, end: 20100301

REACTIONS (2)
  - HALLUCINATION [None]
  - CONFUSIONAL STATE [None]
